FAERS Safety Report 9201748 (Version 5)
Quarter: 2013Q4

REPORT INFORMATION
  Report Type: Spontaneous
  Country: DE (occurrence: None)
  Receive Date: 20130327
  Receipt Date: 20131203
  Transmission Date: 20140711
  Serious: Yes (Hospitalization)
  Sender: FDA-Public Use
  Company Number: 2013MPI00149

PATIENT
  Age: 30 Year
  Sex: Female

DRUGS (9)
  1. BRENTUXIMAB VEDOTIN (BRENTUXIMAB VEDOTIN) INJECTION [Suspect]
     Indication: HODGKIN^S DISEASE
     Dosage: QCYCLE
     Route: 042
     Dates: start: 20121106, end: 20130218
  2. CYCLOPHOSPHAMIDE (CYCLOPHOSPHAMIDE) [Suspect]
     Indication: HODGKIN^S DISEASE
     Dates: end: 20130219
  3. DOXORUBICIN (DOXORUBICIN) (DOXORUBICIN) [Suspect]
     Indication: HODGKIN^S DISEASE
     Dates: end: 20130219
  4. ETOPOSIDE (ETOPOSIDE) [Suspect]
     Indication: HODGKIN^S DISEASE
     Dates: end: 20130221
  5. DACARBAZINE (DACARBAZINE) [Suspect]
     Indication: HODGKIN^S DISEASE
     Dates: end: 20130221
  6. DEXAMETHASONE (DEXAMETHASONE) [Suspect]
     Indication: HODGKIN^S DISEASE
     Dates: end: 20130222
  7. NEULASTA (PEGFILGRASTIM) [Concomitant]
  8. PANTOPRAZOLE (PANTOPRAZOLE) [Concomitant]
  9. CIPROFLOXACIN (CIPROFLOXACIN HYDROCHLORIDE) [Concomitant]

REACTIONS (7)
  - Respiratory tract infection [None]
  - Tachycardia [None]
  - Bronchopneumonia [None]
  - Sinus tachycardia [None]
  - Haemoglobin decreased [None]
  - Haematocrit decreased [None]
  - White blood cell count decreased [None]
